FAERS Safety Report 6365998-3 (Version None)
Quarter: 2009Q3

REPORT INFORMATION
  Report Type: 
  Country: None (occurrence: None)
  Receive Date: 20090919
  Receipt Date: 20090825
  Transmission Date: 20100115
  Serious: No
  Sender: FDA-Public Use
  Company Number: US-ABBOTT-09P-163-0593874-00

PATIENT
  Sex: Female

DRUGS (5)
  1. HUMIRA [Suspect]
     Indication: CROHN'S DISEASE
     Route: 058
     Dates: start: 20090301
  2. HUMIRA [Suspect]
     Route: 058
  3. OMEPRAZOLE [Concomitant]
     Indication: CROHN'S DISEASE
  4. FLAGYL [Concomitant]
     Indication: CROHN'S DISEASE
  5. ACTIGALL [Concomitant]
     Indication: CROHN'S DISEASE

REACTIONS (5)
  - ACNE [None]
  - DRUG INEFFECTIVE [None]
  - MENSTRUATION IRREGULAR [None]
  - PAIN IN EXTREMITY [None]
  - POLYMENORRHOEA [None]
